FAERS Safety Report 9305715 (Version 2)
Quarter: 2013Q2

REPORT INFORMATION
  Report Type: Report from Study
  Country: JP (occurrence: JP)
  Receive Date: 20130523
  Receipt Date: 20130620
  Transmission Date: 20140414
  Serious: Yes (Hospitalization)
  Sender: FDA-Public Use
  Company Number: JP-ELI_LILLY_AND_COMPANY-JP201304002391

PATIENT
  Age: 75 Year
  Sex: Female

DRUGS (2)
  1. TERIPARATIDE [Suspect]
     Route: 058
  2. TERIPARATIDE [Suspect]
     Dosage: UNK
     Dates: start: 20130615

REACTIONS (2)
  - Fracture [Unknown]
  - Injection site bruising [Unknown]
